FAERS Safety Report 8071420-1 (Version None)
Quarter: 2012Q1

REPORT INFORMATION
  Report Type: 
  Country: None (occurrence: None)
  Receive Date: 20120125
  Receipt Date: 20120117
  Transmission Date: 20120608
  Serious: Yes (Other)
  Sender: FDA-Public Use
  Company Number: US-ELI_LILLY_AND_COMPANY-US201201006044

PATIENT
  Sex: Female

DRUGS (2)
  1. HUMALOG [Suspect]
     Dosage: 27 U, EACH EVENING
     Dates: start: 20070101
  2. HUMALOG [Suspect]
     Indication: DIABETES MELLITUS
     Dosage: 15 U, EACH MORNING
     Dates: start: 20070101

REACTIONS (1)
  - BLINDNESS [None]
